FAERS Safety Report 9482790 (Version 2)
Quarter: 2013Q3

REPORT INFORMATION
  Report Type: Spontaneous
  Country: JP (occurrence: JP)
  Receive Date: 20130828
  Receipt Date: 20130913
  Transmission Date: 20140515
  Serious: Yes (Hospitalization)
  Sender: FDA-Public Use
  Company Number: JP-B.I. PHARMACEUTICALS,INC./RIDGEFIELD-2013-BI-26184GD

PATIENT
  Age: 77 Year
  Sex: Female
  Weight: 58.3 kg

DRUGS (5)
  1. TELMISARTAN [Suspect]
     Indication: HYPERTENSION
     Dosage: 40 MG
  2. LOSARTAN POTASSIUM AND HYDROCHLOROTHIAZIDE [Suspect]
     Indication: HYPERTENSION
     Dosage: LOSARTAN/HCTH: 50 MG/12.5 MG
  3. METHYLDOPA [Suspect]
     Indication: HYPERTENSION
     Dosage: 250 MG
  4. EZETIMIBE [Concomitant]
     Dosage: 10 MG
  5. RANITIDINE [Concomitant]
     Dosage: 225 MG

REACTIONS (1)
  - Hyponatraemia [Recovered/Resolved]
